FAERS Safety Report 7215636-2 (Version None)
Quarter: 2011Q1

REPORT INFORMATION
  Report Type: 
  Country: None (occurrence: None)
  Receive Date: 20110104
  Receipt Date: 20110104
  Transmission Date: 20110831
  Serious: Yes (Life-Threatening, Hospitalization, Disabling)
  Sender: FDA-Public Use
  Company Number: None

PATIENT
  Age: 29 Year
  Sex: Male
  Weight: 103.4201 kg

DRUGS (2)
  1. TIKOSYN [Suspect]
     Indication: CARDIAC FAILURE CONGESTIVE
     Dosage: ONE TABLE 2 X A DAY PO
     Route: 048
     Dates: start: 20101202, end: 20101202
  2. TIKOSYN [Suspect]
     Indication: ATRIAL FIBRILLATION
     Dosage: ONE TABLE 2 X A DAY PO
     Route: 048
     Dates: start: 20101202, end: 20101202

REACTIONS (2)
  - VENTRICULAR FIBRILLATION [None]
  - HYPERSENSITIVITY [None]
